FAERS Safety Report 4347820-X (Version None)
Quarter: 2004Q1

REPORT INFORMATION
  Report Type: 
  Country: None (occurrence: None)
  Receive Date: 20040325
  Receipt Date: 20040217
  Transmission Date: 20041129
  Serious: No
  Sender: FDA-Public Use
  Company Number: USA040156995

PATIENT
  Age: 76 Year
  Sex: Female

DRUGS (1)
  1. FORTEO [Suspect]
     Dates: start: 20040116

REACTIONS (4)
  - BACK PAIN [None]
  - CHEST PAIN [None]
  - FEELING HOT [None]
  - HEART RATE INCREASED [None]
